FAERS Safety Report 15315368 (Version 1)
Quarter: 2018Q3

REPORT INFORMATION
  Report Type: Report from Study
  Country: None (occurrence: CO)
  Receive Date: 20180824
  Receipt Date: 20180824
  Transmission Date: 20181010
  Serious: Yes (Hospitalization)
  Sender: FDA-Public Use
  Company Number: CO-ABBVIE-18K-036-2463332-00

PATIENT
  Age: 68 Year
  Sex: Female
  Weight: 34 kg

DRUGS (2)
  1. HUMIRA [Suspect]
     Active Substance: ADALIMUMAB
     Indication: RHEUMATOID ARTHRITIS
     Route: 058
     Dates: start: 20090930
  2. HUMIRA [Suspect]
     Active Substance: ADALIMUMAB
     Indication: RHEUMATOID ARTHRITIS
     Route: 058
     Dates: end: 20180712

REACTIONS (4)
  - Abdominal pain [Recovering/Resolving]
  - Inflammation [Recovering/Resolving]
  - Back pain [Recovering/Resolving]
  - Spinal flattening [Recovering/Resolving]

NARRATIVE: CASE EVENT DATE: 20180803
